FAERS Safety Report 12040373 (Version 1)
Quarter: 2016Q1

REPORT INFORMATION
  Report Type: Spontaneous
  Country: US (occurrence: US)
  Receive Date: 20160208
  Receipt Date: 20160208
  Transmission Date: 20160526
  Serious: No
  Sender: FDA-Public Use
  Company Number: US-GLAXOSMITHKLINE-US2016012009

PATIENT
  Age: 81 Year
  Sex: Female

DRUGS (7)
  1. LEXAPRO [Suspect]
     Active Substance: ESCITALOPRAM OXALATE
     Indication: PANIC ATTACK
     Dosage: 100 MG, QD
     Dates: start: 2008
  2. HYDROXYZ PAM [Interacting]
     Active Substance: HYDROXYZINE PAMOATE
     Indication: PANIC ATTACK
     Dosage: 25 MG, UNK
     Route: 048
  3. LEVOTHYROXIN [Concomitant]
     Active Substance: LEVOTHYROXINE
  4. LAMOTRIGINE TABLET [Interacting]
     Active Substance: LAMOTRIGINE
     Dosage: 50 MG, QD
     Route: 048
     Dates: start: 20150125
  5. DOXEPINE [Concomitant]
     Active Substance: DOXEPIN
     Indication: PANIC ATTACK
     Dosage: UNK
  6. LAMOTRIGINE TABLET [Interacting]
     Active Substance: LAMOTRIGINE
     Indication: PANIC ATTACK
     Dosage: 100 MG, 1D
     Route: 048
     Dates: start: 2008
  7. XANAX [Concomitant]
     Active Substance: ALPRAZOLAM

REACTIONS (5)
  - Dizziness [Recovered/Resolved]
  - Labelled drug-drug interaction medication error [Unknown]
  - Hypertension [Not Recovered/Not Resolved]
  - Insulin resistance [Not Recovered/Not Resolved]
  - Drug ineffective [Not Recovered/Not Resolved]

NARRATIVE: CASE EVENT DATE: 20160126
